FAERS Safety Report 14757762 (Version 1)
Quarter: 2018Q2

REPORT INFORMATION
  Report Type: Report from Study
  Country: NO (occurrence: NO)
  Receive Date: 20180413
  Receipt Date: 20180413
  Transmission Date: 20180711
  Serious: Yes (Other)
  Sender: FDA-Public Use
  Company Number: NO-ASTRAZENECA-2018SE28142

PATIENT
  Age: 24003 Day
  Sex: Female
  Weight: 61 kg

DRUGS (8)
  1. OLAPARIB. [Suspect]
     Active Substance: OLAPARIB
     Indication: BREAST CANCER FEMALE
     Route: 048
     Dates: start: 20180110
  2. OLAPARIB. [Suspect]
     Active Substance: OLAPARIB
     Indication: BREAST CANCER FEMALE
     Route: 048
     Dates: start: 20180116
  3. H2 BLOCKADE [Concomitant]
  4. H2 BLOCKADE [Concomitant]
     Dates: start: 20180214
  5. ZANTAC [Concomitant]
     Active Substance: RANITIDINE HYDROCHLORIDE
     Route: 048
  6. ZANTAC [Concomitant]
     Active Substance: RANITIDINE HYDROCHLORIDE
     Dosage: 150 MG 2-3 TABLETS A DAY
     Route: 048
     Dates: start: 20180301
  7. H2 BLOCKADE [Concomitant]
     Dates: start: 20180221
  8. SOMAC [Concomitant]
     Active Substance: PANTOPRAZOLE SODIUM
     Dates: end: 20180301

REACTIONS (5)
  - Diarrhoea [Not Recovered/Not Resolved]
  - Vomiting [Unknown]
  - Abdominal pain [Not Recovered/Not Resolved]
  - Nausea [Not Recovered/Not Resolved]
  - Dyspepsia [Unknown]

NARRATIVE: CASE EVENT DATE: 20180110
